FAERS Safety Report 14012824 (Version 1)
Quarter: 2017Q3

REPORT INFORMATION
  Report Type: Spontaneous
  Country: US (occurrence: US)
  Receive Date: 20170926
  Receipt Date: 20170926
  Transmission Date: 20171128
  Serious: Yes (Other)
  Sender: FDA-Public Use
  Company Number: US-SA-2017SA177311

PATIENT
  Sex: Female

DRUGS (1)
  1. ICY HOT [Suspect]
     Active Substance: MENTHOL\METHYL SALICYLATE
     Dosage: FORM-PATCH
     Route: 065
     Dates: start: 2017

REACTIONS (5)
  - Scar [Unknown]
  - Burns second degree [Unknown]
  - Nerve injury [Unknown]
  - Burns third degree [Unknown]
  - Blister [Unknown]

NARRATIVE: CASE EVENT DATE: 2017
